FAERS Safety Report 23409797 (Version 4)
Quarter: 2024Q1

REPORT INFORMATION
  Report Type: Report from Study
  Country: JP (occurrence: JP)
  Receive Date: 20240117
  Receipt Date: 20240315
  Transmission Date: 20240409
  Serious: Yes (Other)
  Sender: FDA-Public Use
  Company Number: JP-Eisai-202312545_LEN-EC_P_1

PATIENT
  Age: 49 Year
  Sex: Female
  Weight: 37 kg

DRUGS (14)
  1. LENVIMA [Suspect]
     Active Substance: LENVATINIB
     Indication: Endometrial cancer recurrent
     Route: 048
     Dates: start: 20230324, end: 20230402
  2. LENVIMA [Suspect]
     Active Substance: LENVATINIB
     Route: 048
     Dates: start: 20230421, end: 20230422
  3. LENVIMA [Suspect]
     Active Substance: LENVATINIB
     Route: 048
     Dates: start: 20230517, end: 20230517
  4. KEYTRUDA [Concomitant]
     Active Substance: PEMBROLIZUMAB
     Indication: Endometrial cancer recurrent
     Route: 041
     Dates: start: 20230324, end: 20230324
  5. KEYTRUDA [Concomitant]
     Active Substance: PEMBROLIZUMAB
     Route: 041
     Dates: start: 20230421, end: 20230421
  6. KEYTRUDA [Concomitant]
     Active Substance: PEMBROLIZUMAB
     Route: 041
     Dates: start: 20230512, end: 20230512
  7. KEYTRUDA [Concomitant]
     Active Substance: PEMBROLIZUMAB
     Route: 041
     Dates: start: 20230605, end: 20230605
  8. KEYTRUDA [Concomitant]
     Active Substance: PEMBROLIZUMAB
     Route: 041
     Dates: start: 20230626, end: 20230626
  9. KEYTRUDA [Concomitant]
     Active Substance: PEMBROLIZUMAB
     Route: 041
     Dates: start: 20230731, end: 20230731
  10. KEYTRUDA [Concomitant]
     Active Substance: PEMBROLIZUMAB
     Route: 041
     Dates: start: 20230818, end: 20230818
  11. KEYTRUDA [Concomitant]
     Active Substance: PEMBROLIZUMAB
     Route: 041
     Dates: start: 20230912, end: 20230912
  12. KEYTRUDA [Concomitant]
     Active Substance: PEMBROLIZUMAB
     Route: 041
     Dates: start: 20231020, end: 20231020
  13. KEYTRUDA [Concomitant]
     Active Substance: PEMBROLIZUMAB
     Route: 041
     Dates: start: 20231208, end: 20231208
  14. KEYTRUDA [Concomitant]
     Active Substance: PEMBROLIZUMAB
     Route: 041
     Dates: start: 20240126, end: 20240126

REACTIONS (1)
  - Arthralgia [Recovering/Resolving]

NARRATIVE: CASE EVENT DATE: 20230413
